FAERS Safety Report 4730965-X (Version None)
Quarter: 2005Q3

REPORT INFORMATION
  Report Type: 
  Country: None (occurrence: None)
  Receive Date: 20050801
  Receipt Date: 20050727
  Transmission Date: 20060218
  Serious: Yes (Other)
  Sender: FDA-Public Use
  Company Number: GB-MERCK-0507GBR00200

PATIENT
  Sex: Female

DRUGS (2)
  1. ZOCOR [Suspect]
     Indication: ILL-DEFINED DISORDER
     Route: 065
  2. ATORVASTATIN CALCIUM [Suspect]
     Indication: ILL-DEFINED DISORDER
     Route: 048

REACTIONS (1)
  - PANCREATIC CARCINOMA [None]
